FAERS Safety Report 6970586-1 (Version None)
Quarter: 2010Q3

REPORT INFORMATION
  Report Type: 
  Country: None (occurrence: None)
  Receive Date: 20100908
  Receipt Date: 20100826
  Transmission Date: 20110219
  Serious: Yes (Other)
  Sender: FDA-Public Use
  Company Number: PHHY2010SI56754

PATIENT
  Sex: Male

DRUGS (7)
  1. AFINITOR [Suspect]
     Indication: RENAL CELL CARCINOMA
     Dosage: 10 MG DAILY
     Dates: start: 20100720, end: 20100730
  2. CONCOR [Concomitant]
  3. GOPTEN [Concomitant]
  4. TERAZOSIN HCL [Concomitant]
  5. AMLOPIN [Concomitant]
  6. ALDACTONE [Concomitant]
  7. MARIVARIN [Concomitant]

REACTIONS (10)
  - CHEST PAIN [None]
  - COUGH [None]
  - DYSPNOEA [None]
  - FLUID RETENTION [None]
  - MOUTH ULCERATION [None]
  - OEDEMA PERIPHERAL [None]
  - PERIORBITAL OEDEMA [None]
  - PROTHROMBIN TIME ABNORMAL [None]
  - STOMATITIS [None]
  - WEIGHT INCREASED [None]
